FAERS Safety Report 4452745-5 (Version None)
Quarter: 2004Q3

REPORT INFORMATION
  Report Type: 
  Country: None (occurrence: None)
  Receive Date: 20040813
  Receipt Date: 20040416
  Transmission Date: 20050211
  Serious: No
  Sender: FDA-Public Use
  Company Number: S04-USA-02923-01

PATIENT
  Age: 76 Year
  Sex: Male

DRUGS (20)
  1. NAMENDA [Suspect]
     Indication: DEMENTIA ALZHEIMER'S TYPE
     Dosage: 20 MG QD PO
     Route: 048
     Dates: start: 20040101
  2. NAMENDA [Suspect]
     Indication: DEMENTIA ALZHEIMER'S TYPE
     Dosage: 5 MG QD PO
     Route: 048
     Dates: start: 20040201, end: 20040101
  3. NAMENDA [Suspect]
     Indication: DEMENTIA ALZHEIMER'S TYPE
     Dosage: 10 MG QD PO
     Route: 048
     Dates: start: 20040101, end: 20040101
  4. NAMENDA [Suspect]
     Indication: DEMENTIA ALZHEIMER'S TYPE
     Dosage: 15 MG QD PO
     Route: 048
     Dates: start: 20040101, end: 20040101
  5. LASIX [Concomitant]
  6. ARICEPT [Concomitant]
  7. CHELATED MAGNESIUM [Concomitant]
  8. MAVIK [Concomitant]
  9. ADALAT [Concomitant]
  10. NEURONTIN [Concomitant]
  11. CARDURA [Concomitant]
  12. WELLBUTRIN [Concomitant]
  13. POTASSIUM CHLORIDE [Concomitant]
  14. VIOXX [Concomitant]
  15. NEXIUM [Concomitant]
  16. VITAMIN E [Concomitant]
  17. VITAMIN C [Concomitant]
  18. VITAMIN B-12 [Concomitant]
  19. LETHICIN [Concomitant]
  20. GLUCOSAMINE [Concomitant]

REACTIONS (2)
  - FATIGUE [None]
  - MUSCULAR WEAKNESS [None]
